FAERS Safety Report 6487268-5 (Version None)
Quarter: 2009Q4

REPORT INFORMATION
  Report Type: 
  Country: None (occurrence: None)
  Receive Date: 20091210
  Receipt Date: 20091203
  Transmission Date: 20100525
  Serious: Yes (Other)
  Sender: FDA-Public Use
  Company Number: GB-JNJFOC-20091107550

PATIENT
  Age: 38 Year
  Sex: Female

DRUGS (6)
  1. TOPAMAX [Suspect]
     Route: 048
     Dates: end: 20091201
  2. TOPAMAX [Suspect]
     Route: 048
     Dates: end: 20091201
  3. TOPAMAX [Suspect]
     Indication: EPILEPSY
     Route: 048
     Dates: end: 20091201
  4. KEPPRA [Concomitant]
     Indication: EPILEPSY
     Route: 048
     Dates: start: 20030101
  5. DESOGESTREL AND ETHINYL ESTRADIOL [Concomitant]
     Indication: MENSTRUATION IRREGULAR
     Route: 048
     Dates: start: 20020101
  6. CLONAZEPAM [Concomitant]
     Indication: EPILEPSY

REACTIONS (1)
  - DYSPHAGIA [None]
